FAERS Safety Report 23491393 (Version 1)
Quarter: 2024Q1

REPORT INFORMATION
  Report Type: Spontaneous
  Country: US (occurrence: None)
  Receive Date: 20240207
  Receipt Date: 20240207
  Transmission Date: 20240409
  Serious: No
  Sender: FDA-Public Use
  Company Number: US-ROCHE-3356513

PATIENT
  Age: 8 Year
  Sex: Male
  Weight: 23.608 kg

DRUGS (4)
  1. NUTROPIN AQ [Suspect]
     Active Substance: SOMATROPIN
     Indication: Growth hormone deficiency
     Dosage: INJECTED ONCE NIGHTLY?EXPIRY DATE: 29/FEB/2024
     Route: 058
     Dates: start: 20230310
  2. NUTROPIN AQ [Suspect]
     Active Substance: SOMATROPIN
  3. NUTROPIN AQ [Suspect]
     Active Substance: SOMATROPIN
     Indication: Short stature
     Dosage: 10MG/2ML?EXPIRY DATE:28/FEB/2024
     Route: 058
     Dates: start: 202303
  4. NUTROPIN AQ [Suspect]
     Active Substance: SOMATROPIN

REACTIONS (6)
  - Product dose omission issue [Unknown]
  - Haemorrhage [Unknown]
  - Crying [Unknown]
  - Product quality issue [Unknown]
  - Device defective [Unknown]
  - Product administration error [Unknown]

NARRATIVE: CASE EVENT DATE: 20230518
